FAERS Safety Report 18018101 (Version 1)
Quarter: 2020Q3

REPORT INFORMATION
  Report Type: Spontaneous
  Country: US (occurrence: US)
  Receive Date: 20200713
  Receipt Date: 20200713
  Transmission Date: 20201103
  Serious: Yes (Other)
  Sender: FDA-Public Use
  Company Number: None

PATIENT
  Age: 92 Year
  Sex: Female
  Weight: 49 kg

DRUGS (2)
  1. REMDESIVIR. [Suspect]
     Active Substance: REMDESIVIR
  2. REMDESIVIR. [Concomitant]
     Active Substance: REMDESIVIR
     Dates: end: 20200713

REACTIONS (1)
  - Renal failure [None]

NARRATIVE: CASE EVENT DATE: 20200713
